FAERS Safety Report 4603616-2 (Version None)
Quarter: 2005Q1

REPORT INFORMATION
  Report Type: 
  Country: None (occurrence: None)
  Receive Date: 20050308
  Receipt Date: 20050224
  Transmission Date: 20050727
  Serious: Yes (Hospitalization)
  Sender: FDA-Public Use
  Company Number: MK200411-0202-3

PATIENT
  Age: 47 Year
  Sex: Female

DRUGS (3)
  1. TOFRANIL                    (STRENGTH ) [Suspect]
     Indication: DEPRESSION
     Route: 048
     Dates: start: 20041014, end: 20041101
  2. TEGRETOL [Suspect]
     Indication: DEPRESSION
     Dates: start: 20041014, end: 20041101
  3. NAPROSYN (DOSE AND THERAPY DATES NOT PROVIDED) [Concomitant]

REACTIONS (24)
  - AGRANULOCYTOSIS [None]
  - ALANINE AMINOTRANSFERASE INCREASED [None]
  - ASPARTATE AMINOTRANSFERASE INCREASED [None]
  - ATELECTASIS [None]
  - BLOOD ALKALINE PHOSPHATASE INCREASED [None]
  - BLOOD BILIRUBIN INCREASED [None]
  - BONE MARROW DEPRESSION [None]
  - HEADACHE [None]
  - HEPATIC MASS [None]
  - HYPERHIDROSIS [None]
  - HYPOAESTHESIA [None]
  - LIVER ABSCESS [None]
  - LIVER DISORDER [None]
  - LOCALISED OEDEMA [None]
  - LYMPHADENOPATHY [None]
  - MALNUTRITION [None]
  - NECK PAIN [None]
  - PAIN IN EXTREMITY [None]
  - PANCYTOPENIA [None]
  - PARAESTHESIA [None]
  - PERITONSILLAR ABSCESS [None]
  - PHARYNGITIS [None]
  - PYREXIA [None]
  - TONSILLITIS [None]
